FAERS Safety Report 9223569 (Version 1)
Quarter: 2013Q2

REPORT INFORMATION
  Report Type: Spontaneous
  Country: US (occurrence: US)
  Receive Date: 20130409
  Receipt Date: 20130409
  Transmission Date: 20140414
  Serious: Yes (Other)
  Sender: FDA-Public Use
  Company Number: US-RB-052145-13

PATIENT
  Sex: Male

DRUGS (1)
  1. MUCINEX DM [Suspect]
     Indication: INTENTIONAL DRUG MISUSE
     Dosage: PATIENT INGESTED 24 TABLETS OF PRODUCT SOMETIME IN THE LAST 2 HOURS.
     Route: 048
     Dates: start: 20130323

REACTIONS (4)
  - Intentional drug misuse [Recovered/Resolved]
  - Sluggishness [Recovered/Resolved]
  - Intentional overdose [Recovered/Resolved]
  - Somnolence [Recovered/Resolved]
